FAERS Safety Report 18776619 (Version 3)
Quarter: 2021Q1

REPORT INFORMATION
  Report Type: Spontaneous
  Country: US (occurrence: US)
  Receive Date: 20210122
  Receipt Date: 20210130
  Transmission Date: 20210419
  Serious: Yes (Other)
  Sender: FDA-Public Use
  Company Number: US-SA-2021SA019086

PATIENT
  Age: 60 Year
  Sex: Female

DRUGS (2)
  1. KERLONG [Suspect]
     Active Substance: BETAXOLOL HYDROCHLORIDE
     Dosage: 31 IU, QD(IN MORNING )
     Route: 065
     Dates: start: 202010
  2. SOLIQUA 100/33 [Suspect]
     Active Substance: INSULIN GLARGINE\LIXISENATIDE
     Indication: TYPE 2 DIABETES MELLITUS
     Dosage: UNK
     Route: 065
     Dates: start: 202010

REACTIONS (4)
  - Loss of consciousness [Unknown]
  - Blood glucose decreased [Recovered/Resolved]
  - Product quality issue [Recovered/Resolved]
  - Malaise [Recovered/Resolved]

NARRATIVE: CASE EVENT DATE: 202012
